FAERS Safety Report 9280803 (Version 1)
Quarter: 2013Q2

REPORT INFORMATION
  Report Type: Spontaneous
  Country: GB (occurrence: GB)
  Receive Date: 20130509
  Receipt Date: 20130509
  Transmission Date: 20140414
  Serious: Yes (Hospitalization, Other)
  Sender: FDA-Public Use
  Company Number: GB-PFIZER INC-GBWYE931327JUL04

PATIENT
  Age: 69 Year
  Sex: Female

DRUGS (5)
  1. IBUPROFEN [Suspect]
     Indication: ARTHRITIS
     Dosage: 400 MG, 3X/DAY
     Route: 048
     Dates: start: 1986, end: 2002
  2. IBUPROFEN [Suspect]
     Dosage: 600 MG, 3X/DAY
     Route: 065
     Dates: start: 2002, end: 20040702
  3. VIOXX [Suspect]
     Indication: ARTHRITIS
     Dosage: 25 MG, 1X/DAY
     Route: 048
     Dates: start: 20040622, end: 20040702
  4. LIPITOR [Concomitant]
     Indication: HYPOCHOLESTEROLAEMIA
     Dosage: 40 MG DAILY
     Route: 048
     Dates: start: 2000
  5. PARACETAMOL [Concomitant]
     Indication: ARTHRITIS
     Dosage: 1 GRAM PRN
     Route: 048

REACTIONS (6)
  - Overdose [Recovering/Resolving]
  - Syncope [Recovering/Resolving]
  - Dyspnoea [Recovering/Resolving]
  - Gastrointestinal ulcer [Recovering/Resolving]
  - Oesophagitis [Recovering/Resolving]
  - Circulatory collapse [Recovering/Resolving]
